FAERS Safety Report 9870832 (Version 1)
Quarter: 2014Q1

REPORT INFORMATION
  Report Type: Spontaneous
  Country: US (occurrence: None)
  Receive Date: 20140203
  Receipt Date: 20140203
  Transmission Date: 20141002
  Serious: Yes (Death, Hospitalization)
  Sender: FDA-Public Use
  Company Number: NSR_01333_2014

PATIENT
  Age: 57 Year
  Sex: Male

DRUGS (1)
  1. BACLOFEN [Suspect]
     Indication: PRODUCT USED FOR UNKNOWN INDICATION
     Route: 048
     Dates: start: 2012, end: 2012

REACTIONS (9)
  - Poisoning [None]
  - Completed suicide [None]
  - Unresponsive to stimuli [None]
  - Tremor [None]
  - Incorrect dose administered [None]
  - Blood pressure systolic increased [None]
  - Grand mal convulsion [None]
  - Hypotension [None]
  - Intentional overdose [None]
